FAERS Safety Report 6335885-5 (Version None)
Quarter: 2009Q3

REPORT INFORMATION
  Report Type: 
  Country: None (occurrence: None)
  Receive Date: 20090828
  Receipt Date: 20090813
  Transmission Date: 20100115
  Serious: Yes (Death, Life-Threatening, Other)
  Sender: FDA-Public Use
  Company Number: 2009002242

PATIENT
  Age: 61 Year
  Sex: Female
  Weight: 36.7 kg

DRUGS (9)
  1. ERLOTINIB HYDROCHLORIDE [Suspect]
     Indication: LUNG ADENOCARCINOMA
     Dosage: (150 MG,QD), ORAL
     Route: 048
     Dates: start: 20090207, end: 20090325
  2. NABOAL (DICLOFENAC) [Concomitant]
  3. DUROTEP (FENTANYL) [Concomitant]
  4. DEPAS (ETIZOLAM) [Concomitant]
  5. MUCOSTA (REBAMIPIDE) [Concomitant]
  6. PRIMPERAN TAB [Concomitant]
  7. LASIX [Concomitant]
  8. GANATON   (ITOPRIDE HYDROCHLORIDE) [Concomitant]
  9. ALDACTONE [Concomitant]

REACTIONS (7)
  - ABDOMINAL DISTENSION [None]
  - DERMATITIS [None]
  - DISEASE PROGRESSION [None]
  - GASTROINTESTINAL PERFORATION [None]
  - NON-SMALL CELL LUNG CANCER METASTATIC [None]
  - OEDEMA [None]
  - PERITONITIS [None]
